FAERS Safety Report 21456399 (Version 2)
Quarter: 2022Q4

REPORT INFORMATION
  Report Type: Report from Study
  Country: US (occurrence: US)
  Receive Date: 20221014
  Receipt Date: 20221104
  Transmission Date: 20230113
  Serious: Yes (Hospitalization, Other)
  Sender: FDA-Public Use
  Company Number: US-GILEAD-2022-0601256

PATIENT
  Age: 29 Year
  Sex: Male

DRUGS (2)
  1. AZTREONAM LYSINE [Suspect]
     Active Substance: AZTREONAM LYSINE
     Indication: Cystic fibrosis
     Dosage: 75 MG, TID FOR 28 DAYS ON AND 28 DAYS OFF
     Route: 055
     Dates: start: 202110
  2. AZTREONAM LYSINE [Suspect]
     Active Substance: AZTREONAM LYSINE
     Indication: Pseudomonas infection

REACTIONS (5)
  - Dyspnoea [Unknown]
  - Pseudomonas infection [Unknown]
  - Cystic fibrosis respiratory infection suppression [Unknown]
  - Staphylococcal infection [Unknown]
  - Cystic fibrosis [Unknown]

NARRATIVE: CASE EVENT DATE: 20220925
